FAERS Safety Report 19649137 (Version 1)
Quarter: 2021Q3

REPORT INFORMATION
  Report Type: Spontaneous
  Country: US (occurrence: US)
  Receive Date: 20210803
  Receipt Date: 20210803
  Transmission Date: 20211014
  Serious: Yes (Other)
  Sender: FDA-Public Use
  Company Number: US-DRREDDYS-SPO/USA/21/0138248

PATIENT
  Age: 42 Year
  Sex: Male
  Weight: 78.75 kg

DRUGS (3)
  1. WELLBUTRIN [Concomitant]
     Active Substance: BUPROPION HYDROCHLORIDE
     Indication: PRODUCT USED FOR UNKNOWN INDICATION
  2. BUPRENORPHINE AND NALOXONE SUBLINGUAL FILM 2 MG/0.5 MG AND 8MG/2MG [Suspect]
     Active Substance: BUPRENORPHINE\NALOXONE
     Indication: PAIN
  3. BUPRENORPHINE AND NALOXONE SUBLINGUAL FILM 2 MG/0.5 MG AND 8MG/2MG [Suspect]
     Active Substance: BUPRENORPHINE\NALOXONE
     Indication: DRUG ABUSE
     Dosage: 8 MG/2 MG TOOK 1?2 FILMS A DAY
     Route: 060
     Dates: start: 2021, end: 2021

REACTIONS (8)
  - Skin wrinkling [Unknown]
  - Product quality issue [Unknown]
  - Oral herpes [Unknown]
  - Drug ineffective [Unknown]
  - Oral disorder [Unknown]
  - Nasal herpes [Recovered/Resolved]
  - Dry skin [Unknown]
  - Skin fissures [Unknown]
